FAERS Safety Report 23350698 (Version 1)
Quarter: 2023Q4

REPORT INFORMATION
  Report Type: Spontaneous
  Country: US (occurrence: None)
  Receive Date: 20231228
  Receipt Date: 20231228
  Transmission Date: 20240110
  Serious: No
  Sender: FDA-Public Use
  Company Number: None

PATIENT
  Age: 37 Year
  Sex: Male

DRUGS (3)
  1. HUMIRA [Suspect]
     Active Substance: ADALIMUMAB
     Indication: Psoriasis
     Dosage: INJECT 80MG (1 PEN) SUBCUTANEOUSLY  ON DAY 1, 40MG (1 PEN) ON DAY 8,  THEN 40MG EVERY 2 WEEKS
     Route: 058
     Dates: start: 202312
  2. HUMIRA [Suspect]
     Active Substance: ADALIMUMAB
     Indication: Psoriatic arthropathy
     Dosage: OTHER FREQUENCY : DAY 8;?
     Route: 058
     Dates: start: 202312
  3. HUMIRA [Suspect]
     Active Substance: ADALIMUMAB
     Dosage: FREQUENCY : EVERY OTHER WEEK;?
     Route: 058
     Dates: start: 202312

REACTIONS (1)
  - Latent tuberculosis [None]
